FAERS Safety Report 7821868-2 (Version None)
Quarter: 2011Q4

REPORT INFORMATION
  Report Type: 
  Country: None (occurrence: None)
  Receive Date: 20111018
  Receipt Date: 20101214
  Transmission Date: 20120403
  Serious: No
  Sender: FDA-Public Use
  Company Number: US-ASTRAZENECA-2010SE59079

PATIENT
  Age: 66 Year
  Sex: Female

DRUGS (8)
  1. LIPITOR [Concomitant]
  2. PREMARIN [Concomitant]
  3. SYMBICORT [Suspect]
     Indication: CHRONIC OBSTRUCTIVE PULMONARY DISEASE
     Dosage: 160 MCG TWO TIMES A DAY
     Route: 055
     Dates: start: 20100501
  4. SPIRIVA [Concomitant]
  5. CARVEDILOL [Concomitant]
  6. SPIRONOLACTONE [Concomitant]
  7. IMIPRAMINE [Concomitant]
  8. NEXIUM [Concomitant]

REACTIONS (2)
  - CANDIDIASIS [None]
  - GINGIVAL PAIN [None]
